FAERS Safety Report 5145921-X (Version None)
Quarter: 2006Q4

REPORT INFORMATION
  Report Type: 
  Country: None (occurrence: None)
  Receive Date: 20061102
  Receipt Date: 20061023
  Transmission Date: 20070319
  Serious: Yes (Death, Life-Threatening)
  Sender: FDA-Public Use
  Company Number: 2006123457

PATIENT
  Age: 86 Year
  Sex: Male

DRUGS (5)
  1. ZOLOFT [Suspect]
     Indication: DEPRESSION
     Dosage: 50 MG (FREQUENCY:  DAILY), ORAL
     Route: 048
     Dates: start: 20060525, end: 20060616
  2. ZOLOFT [Suspect]
     Indication: INSOMNIA
     Dosage: 50 MG (FREQUENCY:  DAILY), ORAL
     Route: 048
     Dates: start: 20060525, end: 20060616
  3. ZOLOFT [Suspect]
     Indication: MOOD ALTERED
     Dosage: 50 MG (FREQUENCY:  DAILY), ORAL
     Route: 048
     Dates: start: 20060525, end: 20060616
  4. ZOLOFT [Suspect]
     Indication: PSYCHOMOTOR HYPERACTIVITY
     Dosage: 50 MG (FREQUENCY:  DAILY), ORAL
     Route: 048
     Dates: start: 20060525, end: 20060616
  5. MINIAS (LORMETAZEPAM) [Concomitant]

REACTIONS (2)
  - CARDIAC FAILURE [None]
  - CEREBROVASCULAR ACCIDENT [None]
